FAERS Safety Report 8327457-8 (Version None)
Quarter: 2012Q2

REPORT INFORMATION
  Report Type: 
  Country: None (occurrence: None)
  Receive Date: 20120502
  Receipt Date: 20120425
  Transmission Date: 20120825
  Serious: Yes (Other)
  Sender: FDA-Public Use
  Company Number: DE-BAYER-2012-037347

PATIENT
  Age: 89 Year
  Sex: Male
  Weight: 76 kg

DRUGS (3)
  1. XARELTO [Interacting]
     Indication: CEREBROVASCULAR ACCIDENT
     Dosage: 20 MG, UNK
  2. XARELTO [Interacting]
     Indication: PROPHYLAXIS
  3. NAPROXEN SODIUM [Suspect]

REACTIONS (1)
  - HAEMORRHAGE [None]
